FAERS Safety Report 8196307-5 (Version None)
Quarter: 2012Q1

REPORT INFORMATION
  Report Type: 
  Country: None (occurrence: None)
  Receive Date: 20120309
  Receipt Date: 20120307
  Transmission Date: 20120608
  Serious: No
  Sender: FDA-Public Use
  Company Number: US-PFIZER INC-2012061380

PATIENT
  Sex: Female
  Weight: 63.492 kg

DRUGS (4)
  1. ALDACTONE [Suspect]
     Indication: HYPERTENSION
     Dosage: UNK
  2. ALDACTONE [Suspect]
     Dosage: 25 MG, DAILY
  3. NORVASC [Suspect]
     Dosage: 5 MG, DAILY
  4. NORVASC [Suspect]
     Indication: HYPERTENSION
     Dosage: UNK

REACTIONS (2)
  - BRONCHIAL DISORDER [None]
  - NASOPHARYNGITIS [None]
